FAERS Safety Report 6975039-2 (Version None)
Quarter: 2010Q3

REPORT INFORMATION
  Report Type: 
  Country: None (occurrence: None)
  Receive Date: 20100910
  Receipt Date: 20090130
  Transmission Date: 20110219
  Serious: No
  Sender: FDA-Public Use
  Company Number: US-WYE-H08007509

PATIENT
  Sex: Male

DRUGS (2)
  1. PRISTIQ [Suspect]
     Indication: DEPRESSION
     Route: 048
     Dates: start: 20090122
  2. ZOLOFT [Concomitant]
     Dosage: UNKNOWN
     Dates: end: 20090125

REACTIONS (5)
  - DECREASED APPETITE [None]
  - FEELING JITTERY [None]
  - NERVOUSNESS [None]
  - PANIC ATTACK [None]
  - RESTLESSNESS [None]
